FAERS Safety Report 16898674 (Version 2)
Quarter: 2019Q4

REPORT INFORMATION
  Report Type: Report from Study
  Country: US (occurrence: US)
  Receive Date: 20191009
  Receipt Date: 20191009
  Transmission Date: 20200122
  Serious: Yes (Hospitalization)
  Sender: FDA-Public Use
  Company Number: US-PUMA BIOTECHNOLOGY, LTD.-2019US009864

PATIENT

DRUGS (1)
  1. NERLYNX [Suspect]
     Active Substance: NERATINIB
     Indication: HER-2 PROTEIN OVEREXPRESSION
     Dosage: 240 MG (6 TABLETS), DAILY
     Route: 048
     Dates: start: 20190826, end: 20190830

REACTIONS (1)
  - Brain oedema [Unknown]
